FAERS Safety Report 6999937-9 (Version None)
Quarter: 2010Q3

REPORT INFORMATION
  Report Type: 
  Country: None (occurrence: None)
  Receive Date: 20100920
  Receipt Date: 20100915
  Transmission Date: 20110219
  Serious: Yes (Death, Hospitalization)
  Sender: FDA-Public Use
  Company Number: PHHY2010US42606

PATIENT
  Sex: Male

DRUGS (1)
  1. EXJADE [Suspect]
     Indication: IRON METABOLISM DISORDER
     Dosage: 2000 MG, QD
     Route: 048

REACTIONS (5)
  - CHROMATURIA [None]
  - DEATH [None]
  - DYSPNOEA [None]
  - FAECES DISCOLOURED [None]
  - URINE ODOUR ABNORMAL [None]
